FAERS Safety Report 7643763-4 (Version None)
Quarter: 2011Q3

REPORT INFORMATION
  Report Type: 
  Country: None (occurrence: None)
  Receive Date: 20110722
  Receipt Date: 20110706
  Transmission Date: 20111222
  Serious: Yes (Hospitalization, Other)
  Sender: FDA-Public Use
  Company Number: 2011MA008421

PATIENT
  Age: 21 Year
  Sex: Female

DRUGS (1)
  1. SULFATRIM PEDIATRIC [Suspect]
     Indication: ABSCESS

REACTIONS (1)
  - STEVENS-JOHNSON SYNDROME [None]
